FAERS Safety Report 9631772 (Version 1)
Quarter: 2013Q4

REPORT INFORMATION
  Report Type: Spontaneous
  Country: JP (occurrence: JP)
  Receive Date: 20131018
  Receipt Date: 20131018
  Transmission Date: 20140711
  Serious: Yes (Other)
  Sender: FDA-Public Use
  Company Number: JP-ROCHE-1290430

PATIENT
  Sex: Male

DRUGS (3)
  1. LUCENTIS [Suspect]
     Indication: PRODUCT USED FOR UNKNOWN INDICATION
     Route: 050
     Dates: start: 201206
  2. LUCENTIS [Suspect]
     Route: 050
     Dates: start: 201207
  3. LUCENTIS [Suspect]
     Route: 050
     Dates: start: 201208

REACTIONS (3)
  - Eye haemorrhage [Unknown]
  - Vision blurred [Recovering/Resolving]
  - Drug ineffective [Unknown]
